FAERS Safety Report 17046675 (Version 1)
Quarter: 2019Q4

REPORT INFORMATION
  Report Type: Spontaneous
  Country: US (occurrence: US)
  Receive Date: 20191119
  Receipt Date: 20191119
  Transmission Date: 20200122
  Serious: No
  Sender: FDA-Public Use
  Company Number: US-TEVA-2019-US-1137836

PATIENT
  Sex: Female

DRUGS (1)
  1. BUPRENORPHINE 15 MCG/HR [Suspect]
     Active Substance: BUPRENORPHINE
     Indication: BACK PAIN
     Route: 065

REACTIONS (4)
  - Influenza [Unknown]
  - Drug ineffective [Unknown]
  - Nausea [Unknown]
  - Product quality issue [Unknown]
